FAERS Safety Report 8578753-0 (Version None)
Quarter: 2012Q3

REPORT INFORMATION
  Report Type: 
  Country: None (occurrence: None)
  Receive Date: 20120808
  Receipt Date: 20120625
  Transmission Date: 20120928
  Serious: No
  Sender: FDA-Public Use
  Company Number: US-GLAXOSMITHKLINE-A0982326A

PATIENT
  Age: 31 Year
  Sex: Female

DRUGS (2)
  1. VELTIN [Suspect]
     Indication: ACNE
     Dosage: 1APP PER DAY
     Route: 061
     Dates: start: 20120620
  2. NO CONCURRENT MEDICATION [Concomitant]

REACTIONS (3)
  - ILL-DEFINED DISORDER [None]
  - PRURITUS [None]
  - ERYTHEMA [None]
